FAERS Safety Report 23977334 (Version 3)
Quarter: 2024Q4

REPORT INFORMATION
  Report Type: Spontaneous
  Country: SE (occurrence: SE)
  Receive Date: 20240614
  Receipt Date: 20241031
  Transmission Date: 20250115
  Serious: Yes (Hospitalization)
  Sender: RECORDATI
  Company Number: SE-ORPHANEU-2024004252

PATIENT

DRUGS (7)
  1. SYLVANT [Suspect]
     Active Substance: SILTUXIMAB
     Indication: Castleman^s disease
     Dosage: 900 MG, Q3W
     Route: 042
     Dates: start: 20230717, end: 20240430
  2. TOCILIZUMAB [Suspect]
     Active Substance: TOCILIZUMAB
     Indication: Castleman^s disease
     Dosage: UNK
     Dates: start: 20240102, end: 20240102
  3. TOCILIZUMAB [Suspect]
     Active Substance: TOCILIZUMAB
     Dosage: UNK
     Dates: start: 20240122, end: 20240122
  4. WARFARIN [Suspect]
     Active Substance: WARFARIN
     Indication: Pelvic venous thrombosis
     Dosage: 2.5 MG TABLET
     Dates: start: 2000, end: 2024
  5. WARFARIN [Suspect]
     Active Substance: WARFARIN
     Dosage: UNK
     Dates: start: 2024
  6. UNSPECIFIED INGREDIENT [Suspect]
     Active Substance: UNSPECIFIED INGREDIENT
     Indication: Pelvic venous thrombosis
     Dosage: UNK
     Dates: start: 2024, end: 2024
  7. ZOLPIDEM [Concomitant]
     Active Substance: ZOLPIDEM TARTRATE
     Indication: Product used for unknown indication
     Dosage: 10 MG, ONE NIGHTLY

REACTIONS (2)
  - Retroperitoneal haematoma [Recovered/Resolved]
  - Pancreatitis [Unknown]

NARRATIVE: CASE EVENT DATE: 20240429
